FAERS Safety Report 25314744 (Version 1)
Quarter: 2025Q2

REPORT INFORMATION
  Report Type: Spontaneous
  Country: GR (occurrence: GR)
  Receive Date: 20250514
  Receipt Date: 20250514
  Transmission Date: 20250716
  Serious: Yes (Other)
  Sender: MYLAN
  Company Number: GR-MYLANLABS-2025M1040209

PATIENT
  Age: 20 Year
  Sex: Female

DRUGS (1)
  1. TACROLIMUS [Suspect]
     Active Substance: TACROLIMUS
     Indication: Atopic keratoconjunctivitis
     Dosage: UNK, BID, CONJUNCTIVAL

REACTIONS (2)
  - Limbal stem cell deficiency [Recovered/Resolved]
  - Off label use [Unknown]
